FAERS Safety Report 12177554 (Version 2)
Quarter: 2016Q1

REPORT INFORMATION
  Report Type: Spontaneous
  Country: US (occurrence: US)
  Receive Date: 20160315
  Receipt Date: 20160318
  Transmission Date: 20160526
  Serious: No
  Sender: FDA-Public Use
  Company Number: US-009507513-1603USA000655

PATIENT
  Age: 16 Year
  Sex: Female
  Weight: 49.89 kg

DRUGS (1)
  1. NEXPLANON [Suspect]
     Active Substance: ETONOGESTREL
     Indication: PRODUCT USE ISSUE
     Dosage: UNK, IN THE LEFT ARM , EVERY 3 YEARS
     Route: 059
     Dates: start: 20151028

REACTIONS (2)
  - Menorrhagia [Unknown]
  - Product use issue [Unknown]

NARRATIVE: CASE EVENT DATE: 20151028
